FAERS Safety Report 8492942-5 (Version None)
Quarter: 2012Q3

REPORT INFORMATION
  Report Type: 
  Country: None (occurrence: None)
  Receive Date: 20120706
  Receipt Date: 20120704
  Transmission Date: 20120928
  Serious: Yes (Other)
  Sender: FDA-Public Use
  Company Number: GB-GLAXOSMITHKLINE-B0792674A

PATIENT
  Sex: Female

DRUGS (10)
  1. RAMIPRIL [Concomitant]
  2. ADCAL [Concomitant]
  3. LANSOPRAZOLE [Concomitant]
  4. FUROSEMIDE [Concomitant]
  5. FRUSEMIDE [Concomitant]
  6. PROLIA [Suspect]
     Indication: OSTEOPOROSIS POSTMENOPAUSAL
     Route: 065
     Dates: start: 20120213
  7. WARFARIN SODIUM [Concomitant]
  8. BISOPROLOL FUMARATE [Concomitant]
  9. FERROUS FUMARATE [Concomitant]
  10. CLOBETASOL PROPIONATE [Suspect]
     Indication: PRODUCT USED FOR UNKNOWN INDICATION
     Route: 065

REACTIONS (3)
  - FREQUENT BOWEL MOVEMENTS [None]
  - ABDOMINAL DISCOMFORT [None]
  - CELLULITIS [None]
